FAERS Safety Report 21596814 (Version 3)
Quarter: 2023Q2

REPORT INFORMATION
  Report Type: Report from Study
  Country: US (occurrence: US)
  Receive Date: 20221115
  Receipt Date: 20230503
  Transmission Date: 20230721
  Serious: Yes (Hospitalization, Other)
  Sender: FDA-Public Use
  Company Number: US-ABBVIE-4186478

PATIENT
  Sex: Female

DRUGS (1)
  1. HUMIRA [Suspect]
     Active Substance: ADALIMUMAB
     Indication: Hidradenitis
     Dosage: CITRATE FREE
     Route: 058
     Dates: start: 20191121, end: 20221105

REACTIONS (8)
  - Sepsis [Unknown]
  - Pneumonia respiratory syncytial viral [Recovered/Resolved]
  - Nasopharyngitis [Not Recovered/Not Resolved]
  - Disorientation [Unknown]
  - Decreased immune responsiveness [Unknown]
  - Cerebrovascular accident [Unknown]
  - Unevaluable event [Unknown]
  - Seasonal allergy [Unknown]
